FAERS Safety Report 8508043-3 (Version None)
Quarter: 2012Q3

REPORT INFORMATION
  Report Type: 
  Country: None (occurrence: None)
  Receive Date: 20120713
  Receipt Date: 20120709
  Transmission Date: 20120928
  Serious: Yes (Other)
  Sender: FDA-Public Use
  Company Number: PHEH2012US011633

PATIENT
  Sex: Male
  Weight: 92.4 kg

DRUGS (10)
  1. ARANESP [Concomitant]
     Dosage: 300 UG, UNK
     Route: 058
  2. GLEEVEC [Suspect]
     Indication: CHRONIC MYELOID LEUKAEMIA
     Dosage: 400 MG, DAILY
     Route: 048
     Dates: start: 20010413, end: 20120220
  3. HYDROCHLOROTHIAZIDE [Concomitant]
     Dosage: 12.5 MG, UNK
     Route: 048
  4. ENALAPRIL MALEATE [Concomitant]
     Dosage: 20 MG, UNK
     Route: 048
  5. METOPROLOL TARTRATE [Concomitant]
     Dosage: 50 MG, DAILY
     Route: 048
  6. VITAMIN D [Concomitant]
  7. ALLOPURINOL [Concomitant]
     Dosage: 100 MG, UNK
     Route: 048
  8. DIURETICS [Concomitant]
  9. AMLODIPINE [Concomitant]
     Dosage: 10 MG, UNK
     Route: 048
  10. ACE INHIBITORS [Concomitant]

REACTIONS (1)
  - RENAL INJURY [None]
